FAERS Safety Report 21379467 (Version 1)
Quarter: 2022Q3

REPORT INFORMATION
  Report Type: Spontaneous
  Country: BR (occurrence: BR)
  Receive Date: 20220927
  Receipt Date: 20220927
  Transmission Date: 20221026
  Serious: Yes (Death, Hospitalization, Other)
  Sender: FDA-Public Use
  Company Number: BR-AUROBINDO-AUR-APL-2022-039497

PATIENT
  Age: 36 Year
  Sex: Female

DRUGS (1)
  1. BELINOSTAT [Suspect]
     Active Substance: BELINOSTAT
     Indication: Adult T-cell lymphoma/leukaemia
     Dosage: UNK, 1 TREATMENT CYCLE
     Route: 065

REACTIONS (1)
  - Cytomegalovirus infection [Fatal]
